FAERS Safety Report 4463215-2 (Version None)
Quarter: 2004Q3

REPORT INFORMATION
  Report Type: 
  Country: None (occurrence: None)
  Receive Date: 20040928
  Receipt Date: 20040914
  Transmission Date: 20050211
  Serious: Yes (Hospitalization)
  Sender: FDA-Public Use
  Company Number: 203109

PATIENT
  Age: 62 Year
  Sex: Female

DRUGS (14)
  1. AVONEX [Suspect]
     Indication: MULTIPLE SCLEROSIS
     Dosage: 30 MCG QW IM
     Route: 030
     Dates: start: 20010713
  2. AVONEX [Suspect]
     Indication: MULTIPLE SCLEROSIS
     Dosage: 30 MCG QW IM
     Route: 030
     Dates: start: 20040401
  3. PANTOPRAZOLE [Concomitant]
  4. CLONIDINE HCL [Concomitant]
  5. NEURONTIN [Concomitant]
  6. LAMICTAL [Concomitant]
  7. NORVASC [Concomitant]
  8. FLAGYL [Concomitant]
  9. IRON [Concomitant]
  10. TRAZODONE HCL [Concomitant]
  11. DITROPAN [Concomitant]
  12. SEROQUEL [Concomitant]
  13. HALDOL [Concomitant]
  14. DOCUSATE  SODIUM [Concomitant]

REACTIONS (5)
  - ANAEMIA [None]
  - COGNITIVE DISORDER [None]
  - GASTROINTESTINAL INFECTION [None]
  - MULTIPLE DRUG OVERDOSE [None]
  - RENAL FAILURE [None]
